FAERS Safety Report 7370172-8 (Version None)
Quarter: 2011Q1

REPORT INFORMATION
  Report Type: 
  Country: None (occurrence: None)
  Receive Date: 20110323
  Receipt Date: 20101222
  Transmission Date: 20110831
  Serious: No
  Sender: FDA-Public Use
  Company Number: US-ASTRAZENECA-2010SE60721

PATIENT
  Age: 37 Year
  Sex: Female

DRUGS (3)
  1. METOPROLOL [Suspect]
     Route: 048
  2. PRILOSEC OTC [Suspect]
     Route: 048
  3. LISINOPRIL [Suspect]
     Route: 048

REACTIONS (1)
  - HYPERSOMNIA [None]
